FAERS Safety Report 9135433 (Version 4)
Quarter: 2013Q3

REPORT INFORMATION
  Report Type: Spontaneous
  Country: US (occurrence: US)
  Receive Date: 20130304
  Receipt Date: 20130805
  Transmission Date: 20140515
  Serious: Yes (Hospitalization, Other)
  Sender: FDA-Public Use
  Company Number: US-PFIZER INC-2013072095

PATIENT
  Age: 34 Year
  Sex: Male

DRUGS (3)
  1. SOMAVERT [Suspect]
     Indication: ACROMEGALY
     Dosage: 40 MG, UNK
     Route: 058
     Dates: start: 20121011, end: 20121011
  2. HYDROCORTISONE [Concomitant]
     Dosage: UNK
  3. METFORMIN [Concomitant]
     Dosage: UNK

REACTIONS (4)
  - Rash [Unknown]
  - Respiratory failure [Unknown]
  - Urticaria [Recovered/Resolved]
  - Dyspnoea [Recovered/Resolved]
